FAERS Safety Report 7501210-7 (Version None)
Quarter: 2011Q2

REPORT INFORMATION
  Report Type: 
  Country: None (occurrence: None)
  Receive Date: 20110524
  Receipt Date: 20110509
  Transmission Date: 20111010
  Serious: No
  Sender: FDA-Public Use
  Company Number: US-B.I. PHARMACEUTICALS,INC./RIDGEFIELD-2011-BP-12669BP

PATIENT
  Sex: Male

DRUGS (6)
  1. PRADAXA [Suspect]
     Indication: ANTICOAGULANT THERAPY
     Dosage: 300 MG
     Route: 048
     Dates: start: 20110101, end: 20110502
  2. CARVEDILOL [Concomitant]
     Indication: HYPERTENSION
     Route: 048
  3. DIGOXIN [Concomitant]
     Indication: HEART RATE IRREGULAR
     Dosage: 250 MG
     Route: 048
  4. AMIODARONE HCL [Concomitant]
     Indication: HEART RATE IRREGULAR
     Dosage: 200 MG
     Route: 048
  5. METFORMIN HCL [Concomitant]
     Indication: DIABETES MELLITUS
     Route: 048
  6. SIMVASTATIN [Concomitant]
     Indication: HYPERCHOLESTEROLAEMIA
     Route: 048

REACTIONS (3)
  - CONTUSION [None]
  - DRY SKIN [None]
  - PRURITUS [None]
